FAERS Safety Report 7419176-7 (Version None)
Quarter: 2011Q2

REPORT INFORMATION
  Report Type: 
  Country: None (occurrence: None)
  Receive Date: 20110415
  Receipt Date: 20110412
  Transmission Date: 20111010
  Serious: Yes (Death, Hospitalization, Other)
  Sender: FDA-Public Use
  Company Number: US-AMGEN-QUU441103

PATIENT
  Age: 75 Year
  Sex: Female
  Weight: 51 kg

DRUGS (2)
  1. NPLATE [Suspect]
     Indication: IDIOPATHIC THROMBOCYTOPENIC PURPURA
     Dosage: 200 A?G, UNK
     Dates: start: 20100609
  2. NPLATE [Suspect]

REACTIONS (13)
  - MULTI-ORGAN FAILURE [None]
  - INTERSTITIAL LUNG DISEASE [None]
  - LUNG DISORDER [None]
  - PULMONARY ALVEOLAR HAEMORRHAGE [None]
  - GASTROINTESTINAL HAEMORRHAGE [None]
  - EPISTAXIS [None]
  - ACUTE RESPIRATORY DISTRESS SYNDROME [None]
  - THROMBOSIS [None]
  - PLATELET COUNT DECREASED [None]
  - CHOLANGITIS SCLEROSING [None]
  - CHOLELITHIASIS [None]
  - THERAPEUTIC RESPONSE DECREASED [None]
  - INFECTION [None]
